FAERS Safety Report 4345004-2 (Version None)
Quarter: 2004Q2

REPORT INFORMATION
  Report Type: 
  Country: None (occurrence: None)
  Receive Date: 20040423
  Receipt Date: 20040408
  Transmission Date: 20050107
  Serious: Yes (Hospitalization, Other)
  Sender: FDA-Public Use
  Company Number: 200412934US

PATIENT
  Sex: Female

DRUGS (11)
  1. ARAVA [Suspect]
     Indication: SLE ARTHRITIS
     Route: 048
     Dates: start: 20010824, end: 20010907
  2. PREMARIN [Concomitant]
     Dosage: DOSE: UNK
  3. DARVOCET-N 100 [Concomitant]
  4. CARDIZEM CD [Concomitant]
     Route: 048
  5. HYZAAR [Concomitant]
     Dosage: DOSE: 50/12.5
     Route: 048
  6. CELEXA [Concomitant]
     Route: 048
  7. ASPIRIN [Concomitant]
     Route: 048
  8. PREDNISONE [Concomitant]
     Route: 048
  9. LIPITOR [Concomitant]
     Route: 048
  10. PLAQUENIL [Concomitant]
     Route: 048
  11. TRAZODONE HCL [Concomitant]
     Route: 048

REACTIONS (24)
  - ABDOMINAL DISCOMFORT [None]
  - ABDOMINAL PAIN [None]
  - ATELECTASIS [None]
  - BACTERIA URINE NO ORGANISM OBSERVED [None]
  - BLOOD AMYLASE INCREASED [None]
  - CLOSTRIDIUM COLITIS [None]
  - COUGH [None]
  - DIARRHOEA [None]
  - DYSPNOEA [None]
  - HAEMATOCRIT DECREASED [None]
  - HAEMOGLOBIN DECREASED [None]
  - HEPATITIS [None]
  - HEPATOTOXICITY [None]
  - HYPOKALAEMIA [None]
  - HYPONATRAEMIA [None]
  - LIPASE INCREASED [None]
  - LUNG INFILTRATION [None]
  - MUSCLE CRAMP [None]
  - MYOSITIS [None]
  - PNEUMONIA [None]
  - PRODUCTIVE COUGH [None]
  - PYREXIA [None]
  - URINE ANALYSIS ABNORMAL [None]
  - VOMITING [None]
